FAERS Safety Report 7165886-9 (Version None)
Quarter: 2010Q4

REPORT INFORMATION
  Report Type: 
  Country: None (occurrence: None)
  Receive Date: 20101216
  Receipt Date: 20101207
  Transmission Date: 20110411
  Serious: Yes (Life-Threatening, Hospitalization, Other)
  Sender: FDA-Public Use
  Company Number: TR-PAR PHARMACEUTICAL, INC-2010SCPR002333

PATIENT
  Age: 80 Year
  Sex: Male

DRUGS (1)
  1. HYDROXYUREA [Suspect]
     Indication: ESSENTIAL THROMBOCYTHAEMIA
     Dosage: UNK
     Route: 065

REACTIONS (2)
  - ACUTE INTERSTITIAL PNEUMONITIS [None]
  - RESPIRATORY FAILURE [None]
